FAERS Safety Report 15473715 (Version 1)
Quarter: 2018Q4

REPORT INFORMATION
  Report Type: Spontaneous
  Country: US (occurrence: US)
  Receive Date: 20181008
  Receipt Date: 20181008
  Transmission Date: 20190205
  Serious: No
  Sender: FDA-Public Use
  Company Number: US-GLAXOSMITHKLINE-US2018176914

PATIENT
  Age: 57 Year
  Sex: Female

DRUGS (2)
  1. VOLTAREN [Suspect]
     Active Substance: DICLOFENAC SODIUM
     Indication: ARTHRALGIA
  2. VOLTAREN [Suspect]
     Active Substance: DICLOFENAC SODIUM
     Indication: ARTHRALGIA
     Dosage: UNK
     Dates: start: 20180924, end: 20180924

REACTIONS (7)
  - Wrong technique in product usage process [Unknown]
  - Drug effective for unapproved indication [Unknown]
  - Gait inability [Unknown]
  - Product use in unapproved indication [Unknown]
  - Product administered at inappropriate site [Unknown]
  - Pain in extremity [Unknown]
  - Prescription drug used without a prescription [Unknown]

NARRATIVE: CASE EVENT DATE: 20180924
